FAERS Safety Report 23797907 (Version 2)
Quarter: 2024Q2

REPORT INFORMATION
  Report Type: Spontaneous
  Country: PL (occurrence: PL)
  Receive Date: 20240430
  Receipt Date: 20240515
  Transmission Date: 20240716
  Serious: Yes (Life-Threatening, Hospitalization, Other)
  Sender: FDA-Public Use
  Company Number: PL-NALPROPION PHARMACEUTICALS INC.-2021-014734

PATIENT
  Age: 29 Year
  Sex: Female

DRUGS (10)
  1. BUPROPION HYDROCHLORIDE [Suspect]
     Active Substance: BUPROPION HYDROCHLORIDE
     Indication: Obesity
     Dosage: 150 MG, QD (THROUGH FIRST 6 DAYS)
     Route: 048
  2. BUPROPION HYDROCHLORIDE [Suspect]
     Active Substance: BUPROPION HYDROCHLORIDE
     Dosage: 300 MG, QD
     Route: 048
  3. BUPROPION HYDROCHLORIDE\NALTREXONE HYDROCHLORIDE [Suspect]
     Active Substance: BUPROPION HYDROCHLORIDE\NALTREXONE HYDROCHLORIDE
     Dosage: 1 DOSAGE FORM, QD (8/90 MILLIGRAM, QD)
     Route: 048
  4. BUPROPION HYDROCHLORIDE\NALTREXONE HYDROCHLORIDE [Suspect]
     Active Substance: BUPROPION HYDROCHLORIDE\NALTREXONE HYDROCHLORIDE
     Indication: Obesity
     Dosage: 2 DOSAGE FORM, QD (2 TABLETS CONTAINING 8 MG OF NALTREXONE AND 90 MG OF BUPROPION PER DAY, AFTER LUN
     Route: 048
  5. NALTREXONE [Suspect]
     Active Substance: NALTREXONE
     Indication: Prophylaxis
     Dosage: 8 MG, QD
     Route: 048
  6. NALTREXONE HYDROCHLORIDE [Suspect]
     Active Substance: NALTREXONE HYDROCHLORIDE
     Indication: Obesity
     Dosage: 8 MG, QD
     Route: 065
  7. ONDANSETRON [Suspect]
     Active Substance: ONDANSETRON
     Indication: Prophylaxis of nausea and vomiting
     Dosage: 16 MG, QD
     Route: 048
  8. OZEMPIC [Suspect]
     Active Substance: SEMAGLUTIDE
     Indication: Obesity
     Dosage: 0.5 MG, QW
     Route: 058
  9. SEMAGLUTIDE [Suspect]
     Active Substance: SEMAGLUTIDE
     Indication: Prophylaxis
     Dosage: 0.5 MG, QW
     Route: 058
  10. VORTIOXETINE [Suspect]
     Active Substance: VORTIOXETINE
     Indication: Obesity
     Dosage: 10 MG, QD (TAKEN AFTER LAST MEAL)
     Route: 048

REACTIONS (19)
  - Serotonin syndrome [Recovered/Resolved]
  - Body temperature increased [Recovered/Resolved]
  - Hyperhidrosis [Recovered/Resolved]
  - Rhabdomyolysis [Recovering/Resolving]
  - Chills [Recovered/Resolved]
  - Myopathy [Recovered/Resolved]
  - Muscle spasms [Recovered/Resolved]
  - Myoglobinuria [Recovered/Resolved]
  - Headache [Recovered/Resolved]
  - Renal failure [Recovered/Resolved]
  - Urinary retention [Recovering/Resolving]
  - Urine output decreased [Recovered/Resolved]
  - Myalgia [Recovered/Resolved]
  - Labelled drug-drug interaction medication error [Recovering/Resolving]
  - Product prescribing error [Unknown]
  - Contraindicated product prescribed [Unknown]
  - Off label use [Unknown]
  - Drug titration error [Unknown]
  - Contraindicated product administered [Unknown]
